FAERS Safety Report 17827628 (Version 3)
Quarter: 2021Q4

REPORT INFORMATION
  Report Type: Spontaneous
  Country: US (occurrence: US)
  Receive Date: 20200527
  Receipt Date: 20211008
  Transmission Date: 20220303
  Serious: No
  Sender: FDA-Public Use
  Company Number: US-BAUSCH-BL-2020-015007

PATIENT
  Age: 48 Year
  Sex: Female
  Weight: 57.2 kg

DRUGS (6)
  1. LACRISERT [Suspect]
     Active Substance: HYDROXYPROPYL CELLULOSE
     Indication: Dry eye
     Dosage: ONE INSERT IN EACH EYE ONCE DAILY
     Route: 047
     Dates: end: 202004
  2. LACRISERT [Suspect]
     Active Substance: HYDROXYPROPYL CELLULOSE
     Dosage: AS DIRECTED
     Route: 047
     Dates: end: 20210922
  3. REPHRESH TEARS [Concomitant]
     Indication: Product used for unknown indication
  4. GENTEAL EYE DROPS [Concomitant]
     Indication: Product used for unknown indication
  5. SYSTANE EYEDROPS [Concomitant]
     Active Substance: POLYETHYLENE GLYCOL 400\PROPYLENE GLYCOL
     Indication: Product used for unknown indication
  6. BUSPAR [Concomitant]
     Active Substance: BUSPIRONE HYDROCHLORIDE
     Indication: Product used for unknown indication

REACTIONS (4)
  - Corneal scar [Not Recovered/Not Resolved]
  - Therapy interrupted [Unknown]
  - Product supply issue [Unknown]
  - Impaired quality of life [Unknown]

NARRATIVE: CASE EVENT DATE: 20200101
